FAERS Safety Report 10210386 (Version 4)
Quarter: 2015Q4

REPORT INFORMATION
  Report Type: Spontaneous
  Country: US (occurrence: US)
  Receive Date: 20140602
  Receipt Date: 20151015
  Transmission Date: 20160304
  Serious: Yes (Other)
  Sender: FDA-Public Use
  Company Number: US-SA-2014SA068157

PATIENT
  Age: 69 Year
  Sex: Female

DRUGS (7)
  1. LANTUS SOLOSTAR [Interacting]
     Active Substance: INSULIN GLARGINE
     Indication: TYPE 2 DIABETES MELLITUS
     Route: 058
     Dates: start: 2013
  2. LANTUS SOLOSTAR [Interacting]
     Active Substance: INSULIN GLARGINE
     Indication: TYPE 2 DIABETES MELLITUS
     Dosage: FREQUENCY: DOES NOT TAKE IT EVERYDAY DOSE:10 UNIT(S)
     Route: 058
     Dates: end: 20151003
  3. LEVEMIR [Suspect]
     Active Substance: INSULIN DETEMIR
     Route: 065
  4. TRAMADOL. [Interacting]
     Active Substance: TRAMADOL
     Indication: PAIN
     Route: 065
  5. SOLOSTAR [Concomitant]
     Active Substance: DEVICE
     Indication: TYPE 2 DIABETES MELLITUS
     Dates: start: 201401
  6. LANTUS SOLOSTAR [Interacting]
     Active Substance: INSULIN GLARGINE
     Indication: TYPE 2 DIABETES MELLITUS
     Dosage: DOSE:8 UNIT(S)
     Route: 058
     Dates: start: 201401
  7. SOLOSTAR [Concomitant]
     Active Substance: DEVICE
     Indication: TYPE 2 DIABETES MELLITUS
     Dates: start: 2013

REACTIONS (19)
  - Drug interaction [Unknown]
  - Petechiae [Unknown]
  - Irritable bowel syndrome [Unknown]
  - Rash papular [Unknown]
  - Blood pressure increased [Unknown]
  - Condition aggravated [Unknown]
  - Drug dose omission [Unknown]
  - Abdominal distension [Unknown]
  - Abdominal discomfort [Unknown]
  - Burning sensation [Unknown]
  - Myelitis transverse [Unknown]
  - Pain [Unknown]
  - Confusional state [Unknown]
  - Dry mouth [Unknown]
  - Paraesthesia [Unknown]
  - Irritability [Unknown]
  - Heart rate increased [Unknown]
  - Contusion [Unknown]
  - Blood glucose increased [Unknown]
